FAERS Safety Report 6928363-3 (Version None)
Quarter: 2010Q3

REPORT INFORMATION
  Report Type: 
  Country: None (occurrence: None)
  Receive Date: 20100817
  Receipt Date: 20100812
  Transmission Date: 20110219
  Serious: Yes (Other)
  Sender: FDA-Public Use
  Company Number: AU-MERCK-1003USA04252

PATIENT
  Age: 69 Year
  Sex: Female
  Weight: 56 kg

DRUGS (8)
  1. JANUVIA [Suspect]
     Indication: DIABETES MELLITUS
     Route: 048
     Dates: start: 20100108, end: 20100310
  2. AMIODARONE HYDROCHLORIDE [Concomitant]
     Route: 065
  3. BICOR (BISOPROLOL FUMARATE) [Concomitant]
     Route: 065
  4. DIAMICRON MR [Concomitant]
     Route: 065
  5. ENALAPRIL MALEATE [Concomitant]
     Route: 065
  6. LIPITOR [Concomitant]
     Route: 065
  7. SPIRONOLACTONE [Concomitant]
     Route: 065
  8. FUROSEMIDE [Concomitant]
     Dosage: 40/80 MG AFTER EATING
     Route: 065

REACTIONS (2)
  - MIXED LIVER INJURY [None]
  - RENAL IMPAIRMENT [None]
